FAERS Safety Report 5216607-8 (Version None)
Quarter: 2007Q1

REPORT INFORMATION
  Report Type: 
  Country: None (occurrence: None)
  Receive Date: 20061130
  Receipt Date: 20060428
  Transmission Date: 20070707
  Serious: Yes (Hospitalization)
  Sender: FDA-Public Use
  Company Number: US200605000213

PATIENT
  Age: 47 Year
  Sex: Female

DRUGS (1)
  1. ZYPREXA [Suspect]

REACTIONS (1)
  - NEUROLEPTIC MALIGNANT SYNDROME [None]
